FAERS Safety Report 7145089-4 (Version None)
Quarter: 2010Q4

REPORT INFORMATION
  Report Type: 
  Country: None (occurrence: None)
  Receive Date: 20101208
  Receipt Date: 20101201
  Transmission Date: 20110411
  Serious: Yes (Death, Hospitalization)
  Sender: FDA-Public Use
  Company Number: PHHY2010US31289

PATIENT
  Sex: Male
  Weight: 45 kg

DRUGS (8)
  1. EXJADE [Suspect]
     Indication: SICKLE CELL ANAEMIA
     Dosage: 1000 MG, QD
     Route: 048
  2. EXJADE [Suspect]
     Dosage: 500 MG, QD
     Route: 048
  3. EXJADE [Suspect]
     Dosage: 1500 MG, QD
     Route: 048
  4. ADVAIR [Concomitant]
     Dosage: 45 MCG: 21MCG, 2 PUFFS BID
     Route: 045
  5. FOLIC ACID [Concomitant]
     Dosage: 1 MG, DAILY
     Route: 048
  6. HYDROXYUREA [Concomitant]
     Dosage: UNK
     Route: 048
  7. OXYGEN [Concomitant]
  8. ALBUTEROL SULFATE [Concomitant]
     Dosage: 90 MCG, 2 PUFFS/ 4-6 HOURS
     Route: 045

REACTIONS (4)
  - BACK PAIN [None]
  - CHEST PAIN [None]
  - MALAISE [None]
  - MALIGNANT NEOPLASM PROGRESSION [None]
